FAERS Safety Report 16108072 (Version 9)
Quarter: 2020Q1

REPORT INFORMATION
  Report Type: Spontaneous
  Country: US (occurrence: US)
  Receive Date: 20190322
  Receipt Date: 20200107
  Transmission Date: 20200409
  Serious: Yes (Death, Hospitalization)
  Sender: FDA-Public Use
  Company Number: US-ACTELION-A-NJ2019-188042

PATIENT
  Age: 62 Year
  Sex: Male
  Weight: 71.2 kg

DRUGS (4)
  1. VELETRI [Suspect]
     Active Substance: EPOPROSTENOL
     Indication: PULMONARY HYPERTENSION
     Dosage: 30 NG/KG, PER MIN
     Route: 042
  2. VELETRI [Suspect]
     Active Substance: EPOPROSTENOL
     Dosage: 26 NG/KG, PER MIN
     Route: 042
     Dates: start: 201708
  3. ELIQUIS [Concomitant]
     Active Substance: APIXABAN
  4. LETAIRIS [Concomitant]
     Active Substance: AMBRISENTAN

REACTIONS (15)
  - Device alarm issue [Unknown]
  - Pneumonia [Unknown]
  - Drug intolerance [Unknown]
  - Device occlusion [Unknown]
  - Death [Fatal]
  - Catheter site haemorrhage [Unknown]
  - Complication associated with device [Recovered/Resolved]
  - Device connection issue [Recovered/Resolved]
  - Device related infection [Unknown]
  - Device leakage [Unknown]
  - Pyrexia [Unknown]
  - Device related sepsis [Recovered/Resolved]
  - Product leakage [Unknown]
  - Catheter management [Recovered/Resolved]
  - Device breakage [Unknown]

NARRATIVE: CASE EVENT DATE: 20190308
